FAERS Safety Report 25444569 (Version 5)
Quarter: 2025Q4

REPORT INFORMATION
  Report Type: Spontaneous
  Country: US (occurrence: US)
  Receive Date: 20250617
  Receipt Date: 20251104
  Transmission Date: 20260117
  Serious: Yes (Hospitalization, Other)
  Sender: BRISTOL-MYERS SQUIBB COMPANY
  Company Number: US-BRISTOL-MYERS SQUIBB COMPANY-2025-085425

PATIENT
  Age: 76 Year
  Sex: Male

DRUGS (3)
  1. POMALYST [Suspect]
     Active Substance: POMALIDOMIDE
     Indication: Plasma cell myeloma
     Dosage: LAST FILLED ON 18-AUG-2025
     Route: 048
  2. POMALYST [Suspect]
     Active Substance: POMALIDOMIDE
     Dosage: DAILY FOR 21 DAYS THEN 7 DAYS OFF
     Route: 048
  3. NINLARO [Concomitant]
     Active Substance: IXAZOMIB CITRATE
     Indication: Product used for unknown indication
     Dosage: LAST FILLED ON 3-SEP-2025

REACTIONS (14)
  - Rash [Unknown]
  - Asthenia [Unknown]
  - Somnolence [Unknown]
  - Urticaria [Recovered/Resolved]
  - Pruritus [Recovered/Resolved]
  - Renal impairment [Recovered/Resolved]
  - Small intestinal obstruction [Unknown]
  - Infection [Unknown]
  - Pneumonia [Unknown]
  - Cerebral congestion [Unknown]
  - Pulmonary congestion [Unknown]
  - Hypotension [Unknown]
  - Red blood cell count decreased [Unknown]
  - Alopecia [Unknown]

NARRATIVE: CASE EVENT DATE: 20250901
